FAERS Safety Report 14176736 (Version 1)
Quarter: 2017Q4

REPORT INFORMATION
  Report Type: Spontaneous
  Country: US (occurrence: None)
  Receive Date: 20171110
  Receipt Date: 20171110
  Transmission Date: 20180321
  Serious: No
  Sender: FDA-Public Use
  Company Number: None

PATIENT
  Age: 50 Year
  Sex: Male

DRUGS (1)
  1. HUMIRA [Suspect]
     Active Substance: ADALIMUMAB
     Indication: MYOCARDITIS
     Dosage: DOSE - DAY 0-80MG?FREQUENCY - ON DAY 1, 40MG ON DAY 8
     Route: 058
     Dates: start: 20171001, end: 20171009

REACTIONS (4)
  - Fatigue [None]
  - Asthenia [None]
  - Pyrexia [None]
  - Influenza like illness [None]

NARRATIVE: CASE EVENT DATE: 20171001
